FAERS Safety Report 8764065 (Version 4)
Quarter: 2013Q2

REPORT INFORMATION
  Report Type: Report from Study
  Country: US (occurrence: US)
  Receive Date: 20120831
  Receipt Date: 20130426
  Transmission Date: 20140414
  Serious: Yes (Hospitalization)
  Sender: FDA-Public Use
  Company Number: US-UCBSA-064477

PATIENT
  Age: 46 Year
  Sex: Male
  Weight: 103.8 kg

DRUGS (9)
  1. CERTOLIZUMAB PEGOL [Suspect]
     Indication: SPONDYLITIS
     Dosage: 6 DOSES
     Route: 058
     Dates: start: 20120312, end: 20120904
  2. CERTOLIZUMAB PEGOL [Suspect]
     Indication: SPONDYLITIS
     Dosage: 12 DOSES/ BLINDED THERAPY
     Route: 058
     Dates: start: 20111006, end: 20120222
  3. CERTOLIZUMAB PEGOL [Suspect]
     Indication: SPONDYLITIS
     Dosage: 12 DOSES/ BLINDED THERAPY
     Route: 058
     Dates: start: 20110421, end: 20110922
  4. SULINDAC [Concomitant]
     Indication: ANKYLOSING SPONDYLITIS
     Route: 048
     Dates: start: 20110110
  5. PREDNISONE OPTHALMIC [Concomitant]
     Indication: IRITIS
     Route: 047
     Dates: start: 2009
  6. IBUPROFEN [Concomitant]
     Indication: HEADACHE
     Route: 048
     Dates: start: 20110110
  7. VITAMIN D [Concomitant]
     Indication: VITAMIN D DEFICIENCY
     Dosage: QS
     Route: 048
     Dates: start: 20120401
  8. ORENCIA [Concomitant]
     Dates: start: 2009
  9. LEVAQUIN [Concomitant]
     Indication: DYSPNOEA
     Route: 048
     Dates: start: 20120814, end: 20120828

REACTIONS (1)
  - Diffuse alveolar damage [Recovering/Resolving]
